FAERS Safety Report 16529495 (Version 1)
Quarter: 2019Q3

REPORT INFORMATION
  Report Type: Spontaneous
  Country: US (occurrence: US)
  Receive Date: 20190703
  Receipt Date: 20190703
  Transmission Date: 20191004
  Serious: No
  Sender: FDA-Public Use
  Company Number: US-PURDUE-USA-2018-0144287

PATIENT
  Sex: Female

DRUGS (2)
  1. DRONABINOL CAPSULES [Suspect]
     Active Substance: DRONABINOL
     Dosage: 10 MG, DAILY
     Route: 048
  2. DRONABINOL CAPSULES [Suspect]
     Active Substance: DRONABINOL
     Indication: DECREASED APPETITE
     Dosage: 10 MG, BID
     Route: 048
     Dates: start: 20180626

REACTIONS (7)
  - Drug ineffective [Unknown]
  - Drug tolerance decreased [Unknown]
  - Dizziness [Unknown]
  - Nervousness [Unknown]
  - Somnolence [Unknown]
  - Product storage error [Recovered/Resolved]
  - Lethargy [Unknown]

NARRATIVE: CASE EVENT DATE: 20180626
